FAERS Safety Report 12118166 (Version 1)
Quarter: 2016Q1

REPORT INFORMATION
  Report Type: Report from Study
  Country: FR (occurrence: FR)
  Receive Date: 20160226
  Receipt Date: 20160226
  Transmission Date: 20160526
  Serious: Yes (Other)
  Sender: FDA-Public Use
  Company Number: FR-ROCHE-1716079

PATIENT
  Sex: Female

DRUGS (2)
  1. CAPECITABINE. [Suspect]
     Active Substance: CAPECITABINE
     Indication: BREAST CANCER METASTATIC
     Route: 065
  2. LIPOSOMAL CYTARABINE [Suspect]
     Active Substance: CYTARABINE
     Indication: BREAST CANCER METASTATIC
     Route: 037

REACTIONS (3)
  - Nervous system disorder [Unknown]
  - Blood disorder [Unknown]
  - Infection [Unknown]
